FAERS Safety Report 10787934 (Version 3)
Quarter: 2017Q1

REPORT INFORMATION
  Report Type: Report from Study
  Country: US (occurrence: US)
  Receive Date: 20150212
  Receipt Date: 20170330
  Transmission Date: 20170428
  Serious: Yes (Hospitalization, Other)
  Sender: FDA-Public Use
  Company Number: US-ROCHE-1536437

PATIENT
  Age: 53 Year
  Sex: Male

DRUGS (3)
  1. IDELALISIB [Suspect]
     Active Substance: IDELALISIB
     Indication: MANTLE CELL LYMPHOMA
     Dosage: ON DAYS 1-28
     Route: 048
  2. LENALIDOMIDE [Suspect]
     Active Substance: LENALIDOMIDE
     Indication: MANTLE CELL LYMPHOMA
     Dosage: ON DAY 21 OF EVERY 28 DAY CYCLE
     Route: 048
  3. RITUXIMAB [Suspect]
     Active Substance: RITUXIMAB
     Indication: MANTLE CELL LYMPHOMA
     Dosage: WEEKLY FOR CYCLE 1 AND THEN DAY 1 OF CYCLES 4, 6, 8 AND 10
     Route: 042

REACTIONS (3)
  - Aspartate aminotransferase increased [Recovered/Resolved]
  - Neutrophil count decreased [Unknown]
  - Alanine aminotransferase increased [Recovered/Resolved]
